FAERS Safety Report 7853627-9 (Version None)
Quarter: 2011Q4

REPORT INFORMATION
  Report Type: 
  Country: None (occurrence: None)
  Receive Date: 20111026
  Receipt Date: 20111020
  Transmission Date: 20120403
  Serious: Yes (Hospitalization, Other)
  Sender: FDA-Public Use
  Company Number: US-PFIZER INC-2011254279

PATIENT
  Sex: Male
  Weight: 130 kg

DRUGS (5)
  1. DILANTIN-125 [Suspect]
     Indication: CONVULSION
     Dosage: UNK
     Route: 048
     Dates: end: 20110801
  2. DILANTIN-125 [Suspect]
     Dosage: 600 MG, UNK
     Route: 048
     Dates: start: 20110101, end: 20110101
  3. DILANTIN-125 [Suspect]
     Dosage: 900 MG, UNK
     Route: 048
     Dates: start: 20110101
  4. DILANTIN-125 [Suspect]
     Dosage: 200 MG, UNK
     Route: 048
     Dates: start: 20110801, end: 20110101
  5. DILANTIN-125 [Suspect]
     Dosage: 900 MG, UNK
     Route: 048
     Dates: start: 20110801, end: 20110801

REACTIONS (7)
  - SUICIDAL IDEATION [None]
  - ANXIETY [None]
  - PANIC ATTACK [None]
  - MOOD SWINGS [None]
  - ANTICONVULSANT DRUG LEVEL DECREASED [None]
  - CONVULSION [None]
  - INSOMNIA [None]
